FAERS Safety Report 8836661 (Version 1)
Quarter: 2012Q4

REPORT INFORMATION
  Report Type: Spontaneous
  Country: FR (occurrence: None)
  Receive Date: 20121010
  Receipt Date: 20121010
  Transmission Date: 20130627
  Serious: Yes (Hospitalization)
  Sender: FDA-Public Use
  Company Number: 2523595-2012-00022

PATIENT
  Age: 66 Year
  Sex: Female
  Weight: 48 kg

DRUGS (9)
  1. UVADEX [Suspect]
     Indication: CGVHD
     Dosage: requested, not provided
  2. EXTRACORPOREAL PHOTOPHERESIS TREATMENT [Concomitant]
  3. ZELITREX [Concomitant]
  4. ROVAMYCINE [Concomitant]
  5. WELLVONE [Concomitant]
  6. INEXIUM [Concomitant]
  7. LEVOTHYROX [Concomitant]
  8. IMODIUM [Concomitant]
  9. MORFAN [Concomitant]

REACTIONS (8)
  - Vomiting [None]
  - Food intolerance [None]
  - Diarrhoea [None]
  - Weight decreased [None]
  - Renal failure acute [None]
  - Inflammation [None]
  - Dehydration [None]
  - Colitis ulcerative [None]
